FAERS Safety Report 9323599 (Version 2)
Quarter: 2013Q2

REPORT INFORMATION
  Report Type: Report from Study
  Country: JP (occurrence: JP)
  Receive Date: 20130603
  Receipt Date: 20130611
  Transmission Date: 20140414
  Serious: Yes (Hospitalization)
  Sender: FDA-Public Use
  Company Number: JP-JNJFOC-20130521231

PATIENT
  Age: 15 Year
  Sex: Male
  Weight: 60 kg

DRUGS (6)
  1. REMICADE [Suspect]
     Indication: CROHN^S DISEASE
     Route: 042
     Dates: start: 20130511
  2. REMICADE [Suspect]
     Indication: CROHN^S DISEASE
     Route: 042
     Dates: start: 20130427
  3. FLAGYL [Concomitant]
     Indication: CROHN^S DISEASE
     Route: 048
     Dates: start: 20130529
  4. FLAGYL [Concomitant]
     Indication: CROHN^S DISEASE
     Route: 048
     Dates: start: 20130327, end: 20130526
  5. MIYA BM [Concomitant]
     Indication: CROHN^S DISEASE
     Route: 048
     Dates: start: 20130529
  6. MIYA BM [Concomitant]
     Indication: CROHN^S DISEASE
     Route: 048
     Dates: start: 20130328, end: 20130526

REACTIONS (1)
  - Small intestinal obstruction [Recovered/Resolved]
